FAERS Safety Report 9448127 (Version 1)
Quarter: 2013Q3

REPORT INFORMATION
  Report Type: Spontaneous
  Country: US (occurrence: US)
  Receive Date: 20130808
  Receipt Date: 20130808
  Transmission Date: 20140515
  Serious: Yes (Hospitalization)
  Sender: FDA-Public Use
  Company Number: US-TARO PHARMACEUTICALS U.S.A., INC-2013SUN04455

PATIENT
  Age: 65 Year
  Sex: Male
  Weight: 53.6 kg

DRUGS (25)
  1. WARFARIN [Suspect]
     Indication: ANTICOAGULANT THERAPY
     Dosage: 5 MG, OD, DAY 1
     Route: 065
  2. WARFARIN [Interacting]
     Dosage: 8 MG/DAY, DAY 2, UNKNOWN
     Route: 065
  3. WARFARIN [Interacting]
     Dosage: 10 MG/DAY, DAY 3, UNKNOWN
     Route: 065
  4. WARFARIN [Interacting]
     Dosage: 12 MG/DAY, DAY 4, UNKNOWN
     Route: 065
  5. WARFARIN [Interacting]
     Dosage: 15 MG/DAY, DAYS 5-7, UNKNOWN
     Route: 065
  6. WARFARIN [Interacting]
     Dosage: 20 MG/DAY, DAY 8, UNKNOWN
     Route: 065
  7. WARFARIN [Interacting]
     Dosage: 15 MG/DAY, DAY 9, UNKNOWN
     Route: 065
  8. WARFARIN [Interacting]
     Dosage: 3 MG/DAY, DAY 12, UNKNOWN
     Route: 065
  9. WARFARIN [Interacting]
     Dosage: 7.5 MG/DAY, DAY 13, UNKNOWN
     Route: 065
  10. WARFARIN [Interacting]
     Dosage: 5 MG/DAY, DAY 14, UNKNOWN
     Route: 065
  11. WARFARIN [Interacting]
     Dosage: 3.5 MG/DAY, DAY 15 ON, UNKNOWN
  12. ASCORBIC ACID [Interacting]
     Indication: IRON DEFICIENCY
     Dosage: 500 MG, BID
     Route: 065
  13. ENOXAPARIN SODIUM [Concomitant]
     Indication: VENOUS THROMBOSIS
     Dosage: 60 MG, BID
     Route: 058
  14. AMLODIPINE [Concomitant]
     Dosage: 2.5 MG, OD
     Route: 048
  15. ASPIRIN [Concomitant]
     Dosage: 81 MG, OD
     Route: 048
  16. CARVEDILOL [Concomitant]
     Dosage: 12.5 MG, BID
     Route: 048
  17. ESOMEPRAZOLE [Concomitant]
     Dosage: 40 MG, OD
     Route: 048
  18. FUROSEMIDE [Concomitant]
     Dosage: 80 MG, OD
     Route: 048
  19. LORAZEPAM [Concomitant]
     Dosage: 0.5 MG, OD AT BED TIME AS NEEDED
     Route: 048
  20. LOSARTAN [Concomitant]
     Dosage: 50 MG, OD
     Route: 048
  21. MAGNESIUM [Concomitant]
     Dosage: 400 MG, OD
     Route: 048
  22. NICOTINE PATCH [Concomitant]
     Dosage: 14 MG, OD
     Route: 062
  23. SIMVASTATIN [Concomitant]
     Dosage: 10 MG, OD AT BEDTIME
     Route: 048
  24. TIOTROPIUM BROMIDE [Concomitant]
     Dosage: 18 MCG, OD BY INHALATION
  25. VITAMIN D [Concomitant]
     Dosage: 400 UNITS, OD
     Route: 048

REACTIONS (2)
  - Inhibitory drug interaction [Recovered/Resolved]
  - Drug resistance [Recovered/Resolved]
